FAERS Safety Report 7879395-2 (Version None)
Quarter: 2011Q4

REPORT INFORMATION
  Report Type: 
  Country: None (occurrence: None)
  Receive Date: 20111101
  Receipt Date: 20111019
  Transmission Date: 20120403
  Serious: Yes (Hospitalization)
  Sender: FDA-Public Use
  Company Number: HU-ELI_LILLY_AND_COMPANY-HU201109007961

PATIENT
  Sex: Male
  Weight: 76 kg

DRUGS (11)
  1. GEMCITABINE HYDROCHLORIDE [Suspect]
     Indication: NON-SMALL CELL LUNG CANCER STAGE IV
     Dosage: 2275 MG, 21 DAYS/CYCLE
     Route: 042
     Dates: start: 20110908
  2. BERODUAL [Concomitant]
     Indication: BRONCHITIS
     Dosage: UNK
     Dates: start: 20110601
  3. DIONIN [Concomitant]
     Indication: PAIN
     Dosage: UNK
     Dates: start: 20110916
  4. QUAMATEL [Concomitant]
     Indication: PROPHYLAXIS
     Dosage: UNK
     Dates: start: 20110916
  5. CISPLATIN [Suspect]
     Indication: NON-SMALL CELL LUNG CANCER STAGE IV
     Dosage: 186 MG, 21 DAYS/CYCLE
     Route: 042
     Dates: start: 20110908
  6. MEGESTROL ACETATE [Concomitant]
     Indication: CACHEXIA
     Dosage: UNK
     Dates: start: 20110916
  7. TARDYFERON                         /00023503/ [Concomitant]
     Indication: ANAEMIA
     Dosage: UNK
     Dates: start: 20110921
  8. ONBREZ [Concomitant]
     Indication: BRONCHITIS
     Dosage: UNK
     Dates: start: 20110916
  9. NUTRIDRINK [Concomitant]
     Indication: CACHEXIA
     Dosage: UNK
     Dates: start: 20110916
  10. PANTOPRAZOLE [Concomitant]
     Indication: ABDOMINAL PAIN UPPER
     Dosage: UNK
     Dates: start: 20110921
  11. FILGRASTIM [Concomitant]
     Indication: LEUKOPENIA
     Dosage: UNK
     Dates: start: 20110921

REACTIONS (1)
  - PULMONARY EMBOLISM [None]
